FAERS Safety Report 10211004 (Version 1)
Quarter: 2014Q2

REPORT INFORMATION
  Report Type: Spontaneous
  Country: US (occurrence: None)
  Receive Date: 20140530
  Receipt Date: 20140530
  Transmission Date: 20141212
  Serious: No
  Sender: FDA-Public Use
  Company Number: None

PATIENT
  Age: 58 Year
  Sex: Male
  Weight: 104.33 kg

DRUGS (1)
  1. TIMOLOL MALEATE 0.5% SOL [Suspect]
     Indication: GLAUCOMA
     Dosage: 1 DROP EACH EYE, ONCE DAILY
     Dates: start: 20140127, end: 20140501

REACTIONS (8)
  - Vision blurred [None]
  - Intraocular pressure increased [None]
  - Reading disorder [None]
  - Product contamination [None]
  - Product substitution issue [None]
  - Blepharospasm [None]
  - Muscle twitching [None]
  - Dry eye [None]
